FAERS Safety Report 5691725-9 (Version None)
Quarter: 2008Q2

REPORT INFORMATION
  Report Type: 
  Country: None (occurrence: None)
  Receive Date: 20080402
  Receipt Date: 20080326
  Transmission Date: 20081010
  Serious: Yes (Hospitalization)
  Sender: FDA-Public Use
  Company Number: US-TEVA-169282USA

PATIENT
  Age: 57 Year
  Sex: Male

DRUGS (4)
  1. CARBIDOPA + LEVODOPA [Suspect]
     Indication: PARKINSON'S DISEASE
  2. PRAMIPEXOLE DIHYDROCHLORIDE [Suspect]
     Indication: PARKINSON'S DISEASE
  3. BENZATROPINE [Suspect]
     Indication: PARKINSON'S DISEASE
  4. QUETIAPINE FUMARATE [Concomitant]

REACTIONS (1)
  - DELUSION OF REPLACEMENT [None]
